FAERS Safety Report 7328651-5 (Version None)
Quarter: 2011Q1

REPORT INFORMATION
  Report Type: 
  Country: None (occurrence: None)
  Receive Date: 20110303
  Receipt Date: 20110223
  Transmission Date: 20110831
  Serious: Yes (Hospitalization, Other)
  Sender: FDA-Public Use
  Company Number: US-ROCHE-702826

PATIENT
  Sex: Female
  Weight: 54.4 kg

DRUGS (1)
  1. ACCUTANE [Suspect]
     Dosage: OTHER INDICATION: PERIORAL DERMATITIS
     Route: 048
     Dates: start: 19950209

REACTIONS (12)
  - OESOPHAGEAL ULCER [None]
  - DEPRESSION [None]
  - CROHN'S DISEASE [None]
  - SMALL INTESTINAL OBSTRUCTION [None]
  - DYSPHAGIA [None]
  - ODYNOPHAGIA [None]
  - EYE INFLAMMATION [None]
  - INFLAMMATORY BOWEL DISEASE [None]
  - COLITIS ULCERATIVE [None]
  - VENTRICULAR EXTRASYSTOLES [None]
  - COLITIS [None]
  - MOUTH ULCERATION [None]
